FAERS Safety Report 8084094-0 (Version None)
Quarter: 2012Q1

REPORT INFORMATION
  Report Type: 
  Country: None (occurrence: None)
  Receive Date: 20120128
  Receipt Date: 20110207
  Transmission Date: 20120608
  Serious: No
  Sender: FDA-Public Use
  Company Number: US-ABBOTT-11P-163-0703377-00

PATIENT
  Sex: Female

DRUGS (5)
  1. HUMIRA [Suspect]
     Route: 058
  2. CARBA [Concomitant]
     Indication: CONVULSION
  3. HUMIRA [Suspect]
     Dosage: DAY EIGHT
     Route: 058
  4. HUMIRA [Suspect]
     Indication: PSORIASIS
     Dosage: DAY ONE
     Route: 058
     Dates: start: 20110115, end: 20110115
  5. TOPAMAX [Concomitant]
     Indication: PRODUCT USED FOR UNKNOWN INDICATION

REACTIONS (3)
  - INJECTION SITE PAIN [None]
  - NASOPHARYNGITIS [None]
  - INJECTION SITE HAEMORRHAGE [None]
